FAERS Safety Report 9370922 (Version 1)
Quarter: 2013Q2

REPORT INFORMATION
  Report Type: Spontaneous
  Country: US (occurrence: US)
  Receive Date: 20130627
  Receipt Date: 20130627
  Transmission Date: 20140414
  Serious: Yes (Hospitalization, Other)
  Sender: FDA-Public Use
  Company Number: US-AMGEN-USASP2013044453

PATIENT
  Age: 63 Year
  Sex: Female

DRUGS (4)
  1. ENBREL [Suspect]
     Indication: PSORIATIC ARTHROPATHY
     Dosage: 50 MG, WEEKLY
     Route: 065
     Dates: start: 20050708, end: 20130529
  2. ENBREL [Suspect]
     Indication: PSORIASIS
  3. HUMIRA [Concomitant]
     Dosage: UNK
     Dates: start: 200707
  4. REMICADE [Concomitant]
     Dosage: UNK

REACTIONS (5)
  - Paralysis [Recovered/Resolved]
  - Upper respiratory fungal infection [Recovered/Resolved]
  - Fungal infection [Recovered/Resolved]
  - Therapeutic response decreased [Not Recovered/Not Resolved]
  - Psoriasis [Not Recovered/Not Resolved]
